FAERS Safety Report 6472116-X (Version None)
Quarter: 2009Q4

REPORT INFORMATION
  Report Type: 
  Country: None (occurrence: None)
  Receive Date: 20091203
  Receipt Date: 20080520
  Transmission Date: 20100525
  Serious: Yes (Death, Other)
  Sender: FDA-Public Use
  Company Number: DE-ELI_LILLY_AND_COMPANY-DE200804000832

PATIENT
  Age: 66 Year
  Sex: Male
  Weight: 60 kg

DRUGS (5)
  1. ALIMTA [Suspect]
     Indication: NON-SMALL CELL LUNG CANCER
     Dosage: 500 MG/M2, UNK
     Route: 042
     Dates: start: 20071221, end: 20071221
  2. FOLIC ACID [Concomitant]
     Dosage: UNK, UNKNOWN
     Route: 065
  3. DEXAMETHASONE TAB [Concomitant]
     Dosage: UNK, UNKNOWN
     Route: 065
  4. VITAMIN B-12 [Concomitant]
     Dosage: UNK, UNKNOWN
     Route: 065
     Dates: start: 20071220
  5. ANTIEMETICS AND ANTINAUSEANTS [Concomitant]
     Dosage: UNK, UNKNOWN
     Route: 065

REACTIONS (4)
  - DISEASE PROGRESSION [None]
  - FEBRILE NEUTROPENIA [None]
  - NEUTROPENIA [None]
  - SEPSIS [None]
